FAERS Safety Report 9718947 (Version 3)
Quarter: 2014Q2

REPORT INFORMATION
  Report Type: Report from Study
  Country: US (occurrence: US)
  Receive Date: 20131127
  Receipt Date: 20140603
  Transmission Date: 20141212
  Serious: Yes (Hospitalization)
  Sender: FDA-Public Use
  Company Number: US-ABBVIE-12P-163-0908635-01

PATIENT
  Age: 55 Year
  Sex: Female
  Weight: 108.05 kg

DRUGS (18)
  1. HUMIRA [Suspect]
     Indication: PSORIASIS
     Route: 058
     Dates: start: 20071025, end: 20071025
  2. HUMIRA [Suspect]
     Route: 058
  3. HUMIRA [Suspect]
     Route: 058
     Dates: start: 20100416
  4. ASPIRIN [Concomitant]
     Indication: TRANSIENT ISCHAEMIC ATTACK
     Dates: start: 20081110
  5. PLAVIX [Concomitant]
     Indication: TRANSIENT ISCHAEMIC ATTACK
     Dates: start: 20081110
  6. CILOSTAZOL [Concomitant]
     Indication: TRANSIENT ISCHAEMIC ATTACK
     Dates: start: 20110201
  7. METHOTREXATE [Concomitant]
     Indication: PSORIASIS
     Dates: start: 199907
  8. LEVOTHYROXINE [Concomitant]
     Indication: HYPOTHYROIDISM
  9. LISINOPRIL [Concomitant]
     Indication: HYPERTENSION
  10. LOZOL [Concomitant]
     Indication: HYPERTENSION
  11. K-DUR [Concomitant]
     Indication: MINERAL SUPPLEMENTATION
  12. DYAZIDE [Concomitant]
     Indication: HYPERTENSION
     Dosage: 75/50
  13. VERAPAMIL [Concomitant]
     Indication: ARRHYTHMIA
  14. SIMVASTATIN [Concomitant]
     Indication: BLOOD CHOLESTEROL INCREASED
  15. PLANTIS IMMUNOPLUS [Concomitant]
     Indication: DIABETES MELLITUS
     Dates: start: 200607
  16. HUMALOG [Concomitant]
     Indication: DIABETES MELLITUS
     Dosage: VARIABLE
     Dates: start: 200607
  17. JANUVIA [Concomitant]
     Indication: DIABETES MELLITUS
     Dates: start: 201003
  18. FOLIC ACID [Concomitant]
     Indication: VITAMIN SUPPLEMENTATION

REACTIONS (1)
  - Transient ischaemic attack [Recovered/Resolved]
